FAERS Safety Report 20413050 (Version 1)
Quarter: 2022Q1

REPORT INFORMATION
  Report Type: Report from Study
  Country: US (occurrence: US)
  Receive Date: 20220201
  Receipt Date: 20220201
  Transmission Date: 20220423
  Serious: No
  Sender: FDA-Public Use
  Company Number: US-REGENERON PHARMACEUTICALS, INC.-2022-17016

PATIENT
  Age: 76 Year
  Sex: Male

DRUGS (1)
  1. CASIRIVIMAB\IMDEVIMAB [Suspect]
     Active Substance: CASIRIVIMAB\IMDEVIMAB
     Indication: Product used for unknown indication
     Dosage: 1200 MG, SINGLE
     Route: 058
     Dates: start: 20211228, end: 20211228

REACTIONS (1)
  - Single component of a two-component product administered [Recovered/Resolved]

NARRATIVE: CASE EVENT DATE: 20211228
